FAERS Safety Report 4288976-7 (Version None)
Quarter: 2004Q1

REPORT INFORMATION
  Report Type: 
  Country: None (occurrence: None)
  Receive Date: 20040205
  Receipt Date: 20030528
  Transmission Date: 20041129
  Serious: Yes (Hospitalization)
  Sender: FDA-Public Use
  Company Number: ETHYOL-02421

PATIENT
  Age: 84 Year
  Sex: Male
  Weight: 79.3795 kg

DRUGS (6)
  1. ETHYOL [Suspect]
     Dosage: 500 MG, 1 IN 1 D, SUBCUTANEOUS
     Route: 058
     Dates: start: 20030415, end: 20030516
  2. SYNTHROIDN (LEVOTHYROXINE SODIUM) [Concomitant]
  3. XANAX [Concomitant]
  4. ZOLADEX [Concomitant]
  5. CASODEX (BICALUTAM) [Concomitant]
  6. CASODEX [Concomitant]

REACTIONS (3)
  - RASH [None]
  - STEVENS-JOHNSON SYNDROME [None]
  - SWELLING FACE [None]
